FAERS Safety Report 7220914-7 (Version None)
Quarter: 2011Q1

REPORT INFORMATION
  Report Type: 
  Country: None (occurrence: None)
  Receive Date: 20110112
  Receipt Date: 20101122
  Transmission Date: 20110831
  Serious: No
  Sender: FDA-Public Use
  Company Number: A0894522A

PATIENT
  Age: 75 Year
  Sex: Male

DRUGS (9)
  1. LIPITOR [Concomitant]
  2. VALIUM [Concomitant]
  3. ASPIRIN [Concomitant]
  4. AVAPRO [Concomitant]
  5. ANTIVERT [Concomitant]
  6. TOPROL-XL [Concomitant]
  7. JALYN [Suspect]
     Route: 048
     Dates: start: 20101115
  8. CIPRO [Concomitant]
  9. FOLIC ACID [Concomitant]

REACTIONS (2)
  - SOMNOLENCE [None]
  - DIZZINESS [None]
